FAERS Safety Report 20066017 (Version 1)
Quarter: 2021Q4

REPORT INFORMATION
  Report Type: Spontaneous
  Country: BR (occurrence: BR)
  Receive Date: 20211114
  Receipt Date: 20211114
  Transmission Date: 20220304
  Serious: Yes (Other)
  Sender: FDA-Public Use
  Company Number: None

PATIENT
  Sex: Male
  Weight: 63.2 kg

DRUGS (7)
  1. LOSARTAN POTASSIUM [Suspect]
     Active Substance: LOSARTAN POTASSIUM
     Indication: Hypertension
     Dosage: 50 MILLIGRAM, Q12H (50 MG, BID)
  2. PURAN [Suspect]
     Active Substance: LEVOTHYROXINE SODIUM
     Indication: Product used for unknown indication
     Dosage: MEDICATION ERROR, MISUSE, 1 DOSAGE FORM , 1 DAY (ONCE DAILY) (QD)
  3. ROSUVASTATIN [Suspect]
     Active Substance: ROSUVASTATIN
     Indication: Dyslipidaemia
     Dosage: 10 MILLIGRAM, QD, FREQUENCY : 1 DAY, MEDICATION ERROR|, MISUSE
  4. BISOPROLOL FUMARATE [Concomitant]
     Active Substance: BISOPROLOL FUMARATE
     Dosage: 5 MILLIGRAM, QD, (FREQUENCY : 1 DAY)
  5. ASPIRIN [Concomitant]
     Active Substance: ASPIRIN
     Dosage: 100 MILLIGRAM, QD, (FREQUENCY : 1 DAY)
  6. CHOLECALCIFEROL [Concomitant]
     Active Substance: CHOLECALCIFEROL
     Dosage: 10000 INTERNATIONAL UNIT, QW (FREQUENCY : 1 WEEK)
  7. DOZEMAST [Concomitant]
     Dosage: 1000 MICROGRAM, QD, (FREQUENCY : 1 DAY)

REACTIONS (6)
  - Brain neoplasm [Recovering/Resolving]
  - Dysphagia [Recovering/Resolving]
  - Tonsil cancer [Unknown]
  - Oesophageal carcinoma recurrent [Unknown]
  - Stenosis [Unknown]
  - Wrong technique in product usage process [Unknown]

NARRATIVE: CASE EVENT DATE: 20200101
